FAERS Safety Report 14490267 (Version 1)
Quarter: 2018Q1

REPORT INFORMATION
  Report Type: Spontaneous
  Country: MX (occurrence: MX)
  Receive Date: 20180206
  Receipt Date: 20180206
  Transmission Date: 20180509
  Serious: Yes (Death, Other)
  Sender: FDA-Public Use
  Company Number: MX-TORRENT-00000108

PATIENT
  Age: 89 Year
  Sex: Female

DRUGS (1)
  1. MEMANTINE. [Suspect]
     Active Substance: MEMANTINE
     Indication: DEMENTIA ALZHEIMER^S TYPE
     Dosage: TWO 10 MG TABLETS PER DAY
     Route: 048
     Dates: end: 20170622

REACTIONS (1)
  - Death [Fatal]
